FAERS Safety Report 5732199-9 (Version None)
Quarter: 2008Q2

REPORT INFORMATION
  Report Type: 
  Country: None (occurrence: None)
  Receive Date: 20080508
  Receipt Date: 20080429
  Transmission Date: 20081010
  Serious: Yes (Other)
  Sender: FDA-Public Use
  Company Number: TH-PFIZER INC-2008020101

PATIENT
  Sex: Female
  Weight: 58 kg

DRUGS (5)
  1. SU-011,248 [Suspect]
     Route: 048
     Dates: start: 20070124, end: 20071022
  2. SU-011,248 [Suspect]
     Route: 048
     Dates: start: 20071106, end: 20080121
  3. AMLODIPINE [Concomitant]
     Indication: HYPERTENSION
     Dosage: DAILY DOSE:5MG
     Route: 048
     Dates: start: 20070221, end: 20080121
  4. AMLODIPINE [Concomitant]
     Dosage: DAILY DOSE:10MG
     Route: 048
     Dates: start: 20080122, end: 20080219
  5. AMLODIPINE [Concomitant]
     Dosage: DAILY DOSE:5MG
     Route: 050
     Dates: start: 20080220, end: 20080402

REACTIONS (1)
  - PROTEINURIA [None]
